FAERS Safety Report 5285542-1 (Version None)
Quarter: 2007Q1

REPORT INFORMATION
  Report Type: 
  Country: None (occurrence: None)
  Receive Date: 20061220
  Receipt Date: 20051222
  Transmission Date: 20070707
  Serious: Yes (Hospitalization)
  Sender: FDA-Public Use
  Company Number: 429943

PATIENT
  Age: 8 Year
  Sex: Male

DRUGS (2)
  1. TAMIFLU [Suspect]
     Indication: COUGH
     Dosage: 45 MG  2 PER DAY  ORAL
     Route: 048
     Dates: start: 20051218, end: 20051222
  2. ZITHROMAX [Concomitant]

REACTIONS (1)
  - CONVULSION [None]
